FAERS Safety Report 21866179 (Version 1)
Quarter: 2023Q1

REPORT INFORMATION
  Report Type: Spontaneous
  Country: JP (occurrence: JP)
  Receive Date: 20230116
  Receipt Date: 20230116
  Transmission Date: 20230418
  Serious: Yes (Death)
  Sender: FDA-Public Use
  Company Number: JP-INSMED-2023-00106-JPAA

PATIENT
  Age: 73 Year
  Sex: Female

DRUGS (1)
  1. AMIKACIN SULFATE [Suspect]
     Active Substance: AMIKACIN SULFATE
     Indication: Mycobacterium avium complex infection
     Route: 055

REACTIONS (2)
  - Respiratory disorder [Fatal]
  - Lung opacity [Not Recovered/Not Resolved]
